FAERS Safety Report 10044391 (Version 2)
Quarter: 2014Q2

REPORT INFORMATION
  Report Type: Spontaneous
  Country: US (occurrence: US)
  Receive Date: 20140328
  Receipt Date: 20140514
  Transmission Date: 20141212
  Serious: Yes (Other)
  Sender: FDA-Public Use
  Company Number: US-JNJFOC-20140313681

PATIENT
  Age: 66 Year
  Sex: Female
  Weight: 101.61 kg

DRUGS (2)
  1. INVOKANA [Suspect]
     Indication: DIABETES MELLITUS
     Route: 048
     Dates: start: 20140311, end: 20140317
  2. INVOKANA [Suspect]
     Indication: DIABETES MELLITUS
     Route: 048
     Dates: start: 20140317

REACTIONS (10)
  - Weight decreased [Not Recovered/Not Resolved]
  - Dehydration [Unknown]
  - Dysstasia [Recovering/Resolving]
  - Dizziness [Recovering/Resolving]
  - Drug dispensing error [Recovered/Resolved]
  - Incorrect dose administered [Recovered/Resolved]
  - Malaise [Unknown]
  - Diarrhoea [Not Recovered/Not Resolved]
  - Asthenia [Recovering/Resolving]
  - Vomiting [Unknown]
